FAERS Safety Report 6398549-8 (Version None)
Quarter: 2009Q4

REPORT INFORMATION
  Report Type: 
  Country: None (occurrence: None)
  Receive Date: 20091013
  Receipt Date: 20091001
  Transmission Date: 20100525
  Serious: Yes (Hospitalization)
  Sender: FDA-Public Use
  Company Number: FR-PFIZER INC-2006062262

PATIENT
  Age: 69 Year

DRUGS (26)
  1. SUNITINIB MALATE [Suspect]
     Indication: RENAL CELL CARCINOMA
     Dosage: 50 MG, 1X/DAY
     Route: 048
     Dates: start: 20060115, end: 20060212
  2. SUNITINIB MALATE [Suspect]
     Route: 048
     Dates: start: 20060228, end: 20060328
  3. SUNITINIB MALATE [Suspect]
     Route: 048
     Dates: start: 20060414, end: 20060508
  4. CEFTRIAXONE [Concomitant]
     Route: 048
     Dates: start: 20060509, end: 20060509
  5. AMOXICILINA + CLAVULANICO [Concomitant]
     Route: 048
     Dates: start: 20060509, end: 20060517
  6. PANTOPRAZOLE SODIUM [Concomitant]
     Route: 048
     Dates: end: 20060523
  7. ESOMEPRAZOLE [Concomitant]
     Route: 048
     Dates: start: 20060524
  8. HYDROXYZINE [Concomitant]
     Route: 048
  9. MACROGOL [Concomitant]
     Route: 048
     Dates: start: 20060131
  10. LACRYVISC [Concomitant]
     Route: 065
     Dates: start: 20060509
  11. BETAMETHASONE [Concomitant]
     Route: 061
  12. PAROXETINE [Concomitant]
     Route: 048
     Dates: start: 20060511
  13. CLONAZEPAM [Concomitant]
     Route: 048
     Dates: start: 20060511
  14. AMITRIPTYLINE [Concomitant]
     Route: 048
     Dates: start: 20060511
  15. PARACETAMOL [Concomitant]
     Route: 048
     Dates: start: 20060511
  16. MICROLAX [Concomitant]
     Route: 054
     Dates: start: 20060511
  17. VALACYCLOVIR HCL [Concomitant]
     Route: 048
     Dates: start: 20060510, end: 20060521
  18. SULFADIAZINE [Concomitant]
     Route: 061
     Dates: start: 20060512
  19. ZOLEDRONIC ACID [Concomitant]
     Route: 042
  20. ENOXAPARIN SODIUM [Concomitant]
     Route: 023
     Dates: start: 20060526
  21. INSULIN [Concomitant]
     Route: 023
     Dates: start: 20060528
  22. METHYLPREDNISOLONE [Concomitant]
     Route: 048
     Dates: start: 20060526
  23. MORPHINE [Concomitant]
     Route: 048
     Dates: start: 20060509
  24. LERCANIDIPINE [Concomitant]
     Route: 048
  25. ACITRETIN [Concomitant]
     Route: 048
     Dates: start: 20060414, end: 20060510
  26. BLOOD TRANSFUSION, AUXILIARY PRODUCTS [Concomitant]
     Route: 042
     Dates: start: 20060526, end: 20060526

REACTIONS (2)
  - PAIN [None]
  - SKIN LESION [None]
